FAERS Safety Report 13908298 (Version 2)
Quarter: 2017Q3

REPORT INFORMATION
  Report Type: Report from Study
  Country: None (occurrence: US)
  Receive Date: 20170826
  Receipt Date: 20170929
  Transmission Date: 20171127
  Serious: Yes (Hospitalization, Other)
  Sender: FDA-Public Use
  Company Number: US-ABBVIE-17K-163-2030374-00

PATIENT
  Sex: Female

DRUGS (2)
  1. HUMIRA [Suspect]
     Active Substance: ADALIMUMAB
     Indication: RHEUMATOID ARTHRITIS
     Route: 058
     Dates: start: 20170621, end: 201707
  2. HUMIRA [Suspect]
     Active Substance: ADALIMUMAB
     Route: 058
     Dates: start: 20170810

REACTIONS (14)
  - Malaise [Unknown]
  - Dyschezia [Unknown]
  - Drug ineffective [Unknown]
  - Procedural haemorrhage [Unknown]
  - Fatigue [Unknown]
  - Gastrointestinal pain [Unknown]
  - Anxiety [Unknown]
  - Joint stiffness [Not Recovered/Not Resolved]
  - Incision site cellulitis [Unknown]
  - Haemorrhagic anaemia [Unknown]
  - Arthralgia [Not Recovered/Not Resolved]
  - Procedural pain [Not Recovered/Not Resolved]
  - Pulmonary embolism [Unknown]
  - Decreased appetite [Unknown]

NARRATIVE: CASE EVENT DATE: 2017
